FAERS Safety Report 4819829-0 (Version None)
Quarter: 2005Q4

REPORT INFORMATION
  Report Type: 
  Country: None (occurrence: None)
  Receive Date: 20051102
  Receipt Date: 20051027
  Transmission Date: 20060501
  Serious: Yes (Hospitalization)
  Sender: FDA-Public Use
  Company Number: 05H-124-0303373-00

PATIENT
  Age: 17 Year
  Sex: Male

DRUGS (1)
  1. BUPIVACAINE HCL [Suspect]
     Indication: SPINAL ANAESTHESIA
     Dosage: 1.6 ML, INTRATHECAL
     Route: 037
     Dates: start: 20050621, end: 20050621

REACTIONS (7)
  - COMA [None]
  - HEADACHE [None]
  - MENINGITIS [None]
  - NAUSEA [None]
  - NUCHAL RIGIDITY [None]
  - RESTLESSNESS [None]
  - VOMITING [None]
